FAERS Safety Report 6189982-8 (Version None)
Quarter: 2009Q2

REPORT INFORMATION
  Report Type: 
  Country: None (occurrence: None)
  Receive Date: 20090514
  Receipt Date: 20090506
  Transmission Date: 20091009
  Serious: Yes (Hospitalization, Other)
  Sender: FDA-Public Use
  Company Number: PHHY2009CA17693

PATIENT
  Sex: Female

DRUGS (1)
  1. SANDOSTATIN LAR [Suspect]
     Indication: CARCINOID TUMOUR
     Dosage: 20 MG, QW4
     Route: 030
     Dates: start: 20070104

REACTIONS (3)
  - FALL [None]
  - SHOULDER OPERATION [None]
  - UPPER LIMB FRACTURE [None]
